FAERS Safety Report 5345680-1 (Version None)
Quarter: 2007Q2

REPORT INFORMATION
  Report Type: 
  Country: None (occurrence: None)
  Receive Date: 20070430
  Receipt Date: 20070118
  Transmission Date: 20071010
  Serious: No
  Sender: FDA-Public Use
  Company Number: 260215

PATIENT

DRUGS (1)
  1. LEVEMIR [Suspect]
     Indication: DIABETES MELLITUS
     Dosage: 22 IU, QD, SUBCUTANEOUS
     Route: 058

REACTIONS (3)
  - FAT ATROPHY [None]
  - INJECTION SITE INFLAMMATION [None]
  - TENDERNESS [None]
